FAERS Safety Report 21147210 (Version 1)
Quarter: 2022Q3

REPORT INFORMATION
  Report Type: Spontaneous
  Country: US (occurrence: US)
  Receive Date: 20220729
  Receipt Date: 20220729
  Transmission Date: 20221027
  Serious: Yes (Death, Life-Threatening, Other)
  Sender: FDA-Public Use
  Company Number: US-TERSERA THERAPEUTICS LLC-2022TRS003051

PATIENT

DRUGS (1)
  1. XERMELO [Suspect]
     Active Substance: TELOTRISTAT ETHYL
     Indication: Carcinoid syndrome
     Dosage: 250 MG
     Route: 065

REACTIONS (4)
  - Death [Fatal]
  - Multiple organ dysfunction syndrome [Unknown]
  - Urinary tract infection [Unknown]
  - Weight decreased [Unknown]

NARRATIVE: CASE EVENT DATE: 20210902
